FAERS Safety Report 4380903-7 (Version None)
Quarter: 2004Q2

REPORT INFORMATION
  Report Type: 
  Country: None (occurrence: None)
  Receive Date: 20040616
  Receipt Date: 20040528
  Transmission Date: 20050107
  Serious: Yes (Hospitalization)
  Sender: FDA-Public Use
  Company Number: EWC040639489

PATIENT
  Age: 64 Year
  Sex: Female

DRUGS (4)
  1. OLANZAPINE [Suspect]
     Indication: DYSTHYMIC DISORDER
     Dosage: 2.5 MG/2 DAY
     Dates: start: 20040402, end: 20040508
  2. OLANZAPINE [Suspect]
     Indication: NEUROSIS
     Dosage: 2.5 MG/2 DAY
     Dates: start: 20040402, end: 20040508
  3. TICLID [Concomitant]
  4. PERIPLUM (NIMODIPINE) [Concomitant]

REACTIONS (1)
  - PANCYTOPENIA [None]
